FAERS Safety Report 8874967 (Version 1)
Quarter: 2012Q4

REPORT INFORMATION
  Report Type: 
  Country: US (occurrence: US)
  Receive Date: 20121023
  Receipt Date: 20121023
  Transmission Date: 20130627
  Serious: No
  Sender: FDA-Public Use
  Company Number: US-ROCHE-GNE223916

PATIENT
  Sex: Female

DRUGS (3)
  1. RAPTIVA [Suspect]
     Indication: PSORIASIS
     Dosage: 1.25 mg, 1/Week
     Route: 058
     Dates: start: 20051006
  2. CARDIZEM [Concomitant]
     Indication: HYPERTENSION
     Dosage: 360 mg, qd
     Route: 065
  3. LISINOPRIL [Concomitant]
     Indication: HYPERTENSION
     Dosage: 20 mg, qd
     Route: 065

REACTIONS (3)
  - Acarodermatitis [Recovered/Resolved]
  - Streptococcal infection [Unknown]
  - Dermatitis psoriasiform [Unknown]
